FAERS Safety Report 6138353-9 (Version None)
Quarter: 2009Q1

REPORT INFORMATION
  Report Type: 
  Country: None (occurrence: None)
  Receive Date: 20090331
  Receipt Date: 20090316
  Transmission Date: 20090719
  Serious: Yes (Other)
  Sender: FDA-Public Use
  Company Number: US-GENENTECH-267764

PATIENT
  Age: 38 Year
  Sex: Female

DRUGS (4)
  1. TRASTUZUMAB [Suspect]
     Indication: BREAST CANCER
     Dosage: 528 MG, Q3W
     Route: 042
     Dates: start: 20080822, end: 20080822
  2. TAXOTERE [Suspect]
     Indication: BREAST CANCER
     Dosage: 129 MG, Q3W
     Route: 042
     Dates: start: 20080822, end: 20080822
  3. CARBOPLATIN [Suspect]
     Indication: BREAST CANCER
     Dosage: 170 MG, Q3W
     Route: 042
     Dates: start: 20080822, end: 20080822
  4. RU 486 [Concomitant]
     Indication: ABORTION INDUCED
     Dosage: UNK
     Dates: start: 20080915

REACTIONS (3)
  - ABORTION INDUCED [None]
  - DRUG EXPOSURE DURING PREGNANCY [None]
  - PREGNANCY [None]
